FAERS Safety Report 7237794-6 (Version None)
Quarter: 2011Q1

REPORT INFORMATION
  Report Type: 
  Country: None (occurrence: None)
  Receive Date: 20110121
  Receipt Date: 20110112
  Transmission Date: 20110831
  Serious: Yes (Death, Other)
  Sender: FDA-Public Use
  Company Number: CN-ROCHE-753260

PATIENT

DRUGS (2)
  1. MYCOPHENOLATE MOFETIL [Suspect]
     Indication: RENAL TRANSPLANT
     Dosage: INITIAL DOSE AS 1.5 G/ D (2.0 G/ D IF BODY WEIGHT } 70 KG), AND GRADUALLY REDUCED AFTERWARDS.
     Route: 065
  2. PREDNISONE [Suspect]
     Indication: RENAL TRANSPLANT
     Dosage: INITIAL DOSE AS 20 MG/ D. REDUCED TO 15 MG/ D AFTER 3 MONTHS AND TO 10 MG/ D AFTER 12 MONTHS.
     Route: 065

REACTIONS (3)
  - RESPIRATORY FAILURE [None]
  - CYTOMEGALOVIRUS INFECTION [None]
  - PNEUMONIA [None]
